FAERS Safety Report 6072112-0 (Version None)
Quarter: 2009Q1

REPORT INFORMATION
  Report Type: 
  Country: None (occurrence: None)
  Receive Date: 20090205
  Receipt Date: 20090205
  Transmission Date: 20090719
  Serious: Yes (Other)
  Sender: FDA-Public Use
  Company Number: None

PATIENT
  Age: 48 Year
  Sex: Female
  Weight: 86.637 kg

DRUGS (1)
  1. OXACILLIN [Suspect]
     Indication: OSTEOMYELITIS
     Dosage: OXACILLIN 2 GRAMS 6 H IV BOLUS
     Route: 040
     Dates: start: 20090107, end: 20090129

REACTIONS (3)
  - ALANINE AMINOTRANSFERASE INCREASED [None]
  - ASPARTATE AMINOTRANSFERASE INCREASED [None]
  - WHITE BLOOD CELL COUNT DECREASED [None]
